FAERS Safety Report 16803608 (Version 2)
Quarter: 2025Q3

REPORT INFORMATION
  Report Type: Report from Study
  Country: EU (occurrence: EU)
  Receive Date: 20190913
  Receipt Date: 20250709
  Transmission Date: 20251021
  Serious: Yes (Death, Other)
  Sender: AUROBINDO
  Company Number: EU-AUROBINDO-AUR-APL-2019-059796

PATIENT
  Age: 58 Year
  Sex: Male

DRUGS (2)
  1. CLOPIDOGREL [Suspect]
     Active Substance: CLOPIDOGREL BISULFATE
     Indication: Antiplatelet therapy
     Dosage: 75 MILLIGRAM, ONCE A DAY
     Route: 065
  2. PRASUGREL [Suspect]
     Active Substance: PRASUGREL
     Indication: Antiplatelet therapy
     Dosage: 10 MILLIGRAM, ONCE A DAY
     Route: 065

REACTIONS (3)
  - Sudden cardiac death [Fatal]
  - Drug resistance [Fatal]
  - Drug ineffective [Fatal]
